FAERS Safety Report 19922010 (Version 3)
Quarter: 2021Q4

REPORT INFORMATION
  Report Type: Report from Study
  Country: TR (occurrence: TR)
  Receive Date: 20211005
  Receipt Date: 20211029
  Transmission Date: 20220303
  Serious: Yes (Other)
  Sender: FDA-Public Use
  Company Number: TR-SA-SAC20211005000657

PATIENT
  Age: 22 Year
  Sex: Male

DRUGS (3)
  1. CEREZYME [Suspect]
     Active Substance: IMIGLUCERASE
     Indication: Gaucher^s disease type III
     Dosage: 40 IU/ML, Q15D
     Dates: start: 2000
  2. CLOBAZAM [Suspect]
     Active Substance: CLOBAZAM
     Indication: Epilepsy
     Dosage: 2 DF, QD
     Dates: start: 2001
  3. KETYA XR [Concomitant]
     Indication: Epilepsy
     Dosage: 1 DF, QD
     Dates: start: 2001

REACTIONS (7)
  - Epilepsy [Not Recovered/Not Resolved]
  - Loss of consciousness [Unknown]
  - Anger [Unknown]
  - Balance disorder [Unknown]
  - Dysarthria [Unknown]
  - Pyrexia [Unknown]
  - Ill-defined disorder [Unknown]

NARRATIVE: CASE EVENT DATE: 20010101
